FAERS Safety Report 9302961 (Version 2)
Quarter: 2013Q2

REPORT INFORMATION
  Report Type: Report from Study
  Country: FR (occurrence: FR)
  Receive Date: 20130522
  Receipt Date: 20130605
  Transmission Date: 20140414
  Serious: Yes (Death, Life-Threatening, Hospitalization)
  Sender: FDA-Public Use
  Company Number: FR-CELGENEUS-056-50794-13050748

PATIENT
  Age: 71 Year
  Sex: Female
  Weight: 60 kg

DRUGS (11)
  1. VIDAZA [Suspect]
     Indication: MYELODYSPLASTIC SYNDROME
     Route: 065
     Dates: start: 20130404, end: 20130412
  2. DEPAKINE [Suspect]
     Indication: MYELODYSPLASTIC SYNDROME
     Dosage: 2 GRAM
     Route: 048
     Dates: start: 20120817
  3. DEPAKINE [Suspect]
     Route: 065
     Dates: start: 20130404, end: 20130412
  4. LEVOTHYROX [Concomitant]
     Indication: HYPOTHYROIDISM
     Route: 048
     Dates: start: 201006
  5. ANAFRANIL [Concomitant]
     Indication: DECREASED APPETITE
     Route: 048
     Dates: start: 2010
  6. MYOLASTAN [Concomitant]
     Indication: PAIN
     Route: 048
  7. TERCIAN [Concomitant]
     Indication: AGITATION
     Route: 048
  8. TOPALGIC [Concomitant]
     Indication: PAIN
     Route: 048
  9. FORTIMEL [Concomitant]
     Indication: MALNUTRITION
     Route: 048
     Dates: start: 2013
  10. CERIS [Concomitant]
     Indication: BLADDER SPASM
     Route: 048
     Dates: start: 2013
  11. NEBIVOLOL [Concomitant]
     Indication: HYPERTENSION
     Route: 048
     Dates: start: 2013

REACTIONS (2)
  - Thrombocytopenia [Fatal]
  - Anaemia [Recovered/Resolved]
